FAERS Safety Report 8059069-8 (Version None)
Quarter: 2012Q1

REPORT INFORMATION
  Report Type: 
  Country: None (occurrence: None)
  Receive Date: 20120120
  Receipt Date: 20110826
  Transmission Date: 20120608
  Serious: No
  Sender: FDA-Public Use
  Company Number: US-BAUSCH-2011BL005744

PATIENT
  Age: 67 Year
  Sex: Female

DRUGS (2)
  1. THERATEARS [Concomitant]
  2. ALAWAY [Suspect]
     Indication: HYPERSENSITIVITY
     Route: 047
     Dates: start: 20110818, end: 20110820

REACTIONS (5)
  - EYE PRURITUS [None]
  - EYE DISCHARGE [None]
  - REACTION TO PRESERVATIVES [None]
  - EYE PAIN [None]
  - EYE SWELLING [None]
